FAERS Safety Report 14425034 (Version 2)
Quarter: 2018Q1

REPORT INFORMATION
  Report Type: Spontaneous
  Country: US (occurrence: US)
  Receive Date: 20180123
  Receipt Date: 20180123
  Transmission Date: 20180509
  Serious: Yes (Other)
  Sender: FDA-Public Use
  Company Number: US-CONCORDIA PHARMACEUTICALS INC.-GSH201801-000284

PATIENT

DRUGS (4)
  1. PLAQUENIL [Suspect]
     Active Substance: HYDROXYCHLOROQUINE SULFATE
     Indication: PRODUCT USED FOR UNKNOWN INDICATION
     Route: 048
     Dates: start: 201310, end: 201312
  2. LEFLUNOMIDE. [Suspect]
     Active Substance: LEFLUNOMIDE
     Indication: PRODUCT USED FOR UNKNOWN INDICATION
     Route: 048
     Dates: start: 201708, end: 201711
  3. AZULFIDINE [Concomitant]
     Active Substance: SULFASALAZINE
     Dates: start: 201310, end: 201312
  4. METHOTREXATE. [Concomitant]
     Active Substance: METHOTREXATE
     Dates: start: 201310, end: 201708

REACTIONS (2)
  - Rheumatoid arthritis [Unknown]
  - Nausea [Unknown]

NARRATIVE: CASE EVENT DATE: 201310
